FAERS Safety Report 7568642-2 (Version None)
Quarter: 2011Q2

REPORT INFORMATION
  Report Type: 
  Country: None (occurrence: None)
  Receive Date: 20110623
  Receipt Date: 20110613
  Transmission Date: 20111010
  Serious: Yes (Death)
  Sender: FDA-Public Use
  Company Number: AR-BRISTOL-MYERS SQUIBB COMPANY-15410913

PATIENT
  Age: 78 Year
  Sex: Male

DRUGS (4)
  1. PLACEBO [Suspect]
     Indication: THROMBOSIS PROPHYLAXIS
     Dosage: STOP DATE: APIX: 24NOV10, WARF: 23NOV10.
     Route: 048
     Dates: start: 20080410, end: 20101101
  2. WARFARIN SODIUM [Suspect]
     Indication: THROMBOSIS PROPHYLAXIS
     Route: 048
     Dates: start: 20080410, end: 20101123
  3. ENALAPRIL MALEATE [Concomitant]
     Dates: start: 20010101, end: 20101124
  4. CLONAZEPAM [Concomitant]
     Dates: start: 20050101, end: 20101123

REACTIONS (1)
  - SUDDEN DEATH [None]
